FAERS Safety Report 9854333 (Version 3)
Quarter: 2014Q3

REPORT INFORMATION
  Report Type: Report from Study
  Country: US (occurrence: US)
  Receive Date: 20140130
  Receipt Date: 20140924
  Transmission Date: 20150326
  Serious: Yes (Hospitalization)
  Sender: FDA-Public Use
  Company Number: US-BIOGENIDEC-2014BI007694

PATIENT
  Age: 58 Year
  Sex: Female

DRUGS (1)
  1. TECFIDERA [Suspect]
     Active Substance: DIMETHYL FUMARATE
     Indication: RELAPSING-REMITTING MULTIPLE SCLEROSIS
     Dates: start: 20130721

REACTIONS (14)
  - Hyperhidrosis [Not Recovered/Not Resolved]
  - Secondary adrenocortical insufficiency [Unknown]
  - Hot flush [Unknown]
  - Multiple sclerosis [Unknown]
  - Abasia [Not Recovered/Not Resolved]
  - Weight decreased [Unknown]
  - White blood cell count abnormal [Unknown]
  - Adverse drug reaction [Unknown]
  - Burning sensation [Not Recovered/Not Resolved]
  - Hypotension [Not Recovered/Not Resolved]
  - Feeling cold [Not Recovered/Not Resolved]
  - Asthenia [Not Recovered/Not Resolved]
  - Drug dose omission [Recovered/Resolved]
  - Mobility decreased [Unknown]

NARRATIVE: CASE EVENT DATE: 20140901
